FAERS Safety Report 21831021 (Version 1)
Quarter: 2023Q1

REPORT INFORMATION
  Report Type: Report from Study
  Country: US (occurrence: US)
  Receive Date: 20230106
  Receipt Date: 20230106
  Transmission Date: 20230417
  Serious: No
  Sender: FDA-Public Use
  Company Number: US-ABBVIE-4231670

PATIENT
  Sex: Female

DRUGS (3)
  1. HUMIRA [Suspect]
     Active Substance: ADALIMUMAB
     Indication: Hidradenitis
     Route: 058
  2. Covid vaccine [Concomitant]
     Indication: COVID-19 immunisation
     Route: 030
  3. Covid vaccine [Concomitant]
     Indication: COVID-19 immunisation
     Dosage: BOOSTER DOSE
     Route: 030

REACTIONS (5)
  - Diverticulitis [Not Recovered/Not Resolved]
  - Hidradenitis [Recovering/Resolving]
  - Injection site vesicles [Recovering/Resolving]
  - Dyspepsia [Not Recovered/Not Resolved]
  - Abdominal pain [Unknown]
